FAERS Safety Report 16476278 (Version 7)
Quarter: 2021Q2

REPORT INFORMATION
  Report Type: Report from Study
  Country: None (occurrence: US)
  Receive Date: 20190626
  Receipt Date: 20210525
  Transmission Date: 20210716
  Serious: Yes (Hospitalization)
  Sender: FDA-Public Use
  Company Number: US-ABBVIE-19K-163-2830352-00

PATIENT
  Age: 71 Year
  Sex: Male

DRUGS (3)
  1. OXCARBAZEPINE. [Suspect]
     Active Substance: OXCARBAZEPINE
     Indication: PRODUCT USED FOR UNKNOWN INDICATION
     Route: 065
  2. HUMIRA [Suspect]
     Active Substance: ADALIMUMAB
     Indication: COLITIS ULCERATIVE
     Dosage: CITRATE FREE
     Route: 058
  3. HUMIRA [Suspect]
     Active Substance: ADALIMUMAB
     Indication: COLITIS ULCERATIVE
     Route: 058

REACTIONS (14)
  - Neuropathy peripheral [Recovered/Resolved]
  - Clostridium difficile infection [Recovered/Resolved]
  - Injection site haemorrhage [Recovered/Resolved]
  - Vision blurred [Recovering/Resolving]
  - Herpes zoster [Recovered/Resolved]
  - Dizziness [Recovering/Resolving]
  - Frequent bowel movements [Unknown]
  - Sciatica [Unknown]
  - COVID-19 [Recovering/Resolving]
  - Injection site discomfort [Recovered/Resolved]
  - Limb injury [Unknown]
  - Asthenia [Unknown]
  - Neuropathy peripheral [Recovering/Resolving]
  - Colitis ulcerative [Not Recovered/Not Resolved]

NARRATIVE: CASE EVENT DATE: 2018
